FAERS Safety Report 17823388 (Version 2)
Quarter: 2020Q2

REPORT INFORMATION
  Report Type: Spontaneous
  Country: US (occurrence: US)
  Receive Date: 20200526
  Receipt Date: 20200529
  Transmission Date: 20200714
  Serious: Yes (Other)
  Sender: FDA-Public Use
  Company Number: US-HBP-2020US020597

PATIENT
  Age: 87 Year
  Sex: Female

DRUGS (2)
  1. VALCHLOR [Suspect]
     Active Substance: MECHLORETHAMINE
     Indication: CUTANEOUS T-CELL LYMPHOMA
     Dosage: UNK, QD
     Route: 061
     Dates: start: 202003
  2. CLOBETASOL [Concomitant]
     Active Substance: CLOBETASOL

REACTIONS (1)
  - Neoplasm skin [Not Recovered/Not Resolved]

NARRATIVE: CASE EVENT DATE: 20200520
